FAERS Safety Report 24407256 (Version 1)
Quarter: 2024Q4

REPORT INFORMATION
  Report Type: Spontaneous
  Country: US (occurrence: None)
  Receive Date: 20241005
  Receipt Date: 20241005
  Transmission Date: 20250115
  Serious: Yes (Hospitalization)
  Sender: Public
  Company Number: None

PATIENT
  Age: 68 Year
  Sex: Female
  Weight: 65.25 kg

DRUGS (4)
  1. QUETIAPINE [Suspect]
     Active Substance: QUETIAPINE
  2. OLANZAPINE [Suspect]
     Active Substance: OLANZAPINE
  3. CLONIDINE [Suspect]
     Active Substance: CLONIDINE
  4. XANAX [Suspect]
     Active Substance: ALPRAZOLAM

REACTIONS (19)
  - Withdrawal syndrome [None]
  - Psychotic disorder [None]
  - Hallucination [None]
  - Electric shock [None]
  - Pain [None]
  - Diarrhoea haemorrhagic [None]
  - Lung disorder [None]
  - Nervous system disorder [None]
  - Blood pressure measurement [None]
  - Toxicity to various agents [None]
  - Drug intolerance [None]
  - Adverse drug reaction [None]
  - Euphoric mood [None]
  - Insomnia [None]
  - Pain [None]
  - Bedridden [None]
  - Neuropathy peripheral [None]
  - Asthma [None]
  - Fear [None]

NARRATIVE: CASE EVENT DATE: 20240207
